FAERS Safety Report 9563018 (Version 1)
Quarter: 2013Q3

REPORT INFORMATION
  Report Type: Spontaneous
  Country: US (occurrence: US)
  Receive Date: 20130927
  Receipt Date: 20130927
  Transmission Date: 20140515
  Serious: Yes (Hospitalization)
  Sender: FDA-Public Use
  Company Number: US-B.I. PHARMACEUTICALS,INC./RIDGEFIELD-2013-BI-29709BP

PATIENT
  Age: 75 Year
  Sex: Female

DRUGS (2)
  1. COMBIVENT [Suspect]
     Indication: CHRONIC OBSTRUCTIVE PULMONARY DISEASE
     Dosage: DOSE PER APPLICATION: 18 MCG / 103 MCG;
     Route: 055
     Dates: start: 2011, end: 201306
  2. SYMBICORT [Concomitant]
     Indication: CHRONIC OBSTRUCTIVE PULMONARY DISEASE
     Dosage: 2 PUF
     Route: 055
     Dates: start: 2010

REACTIONS (6)
  - Head injury [Recovered/Resolved]
  - Syncope [Recovered/Resolved]
  - Blood potassium decreased [Recovered/Resolved]
  - Dry eye [Recovered/Resolved]
  - Blood potassium increased [Recovered/Resolved]
  - Generalised oedema [Recovered/Resolved]
